FAERS Safety Report 12636490 (Version 1)
Quarter: 2016Q3

REPORT INFORMATION
  Report Type: Report from Study
  Country: FR (occurrence: FR)
  Receive Date: 20160809
  Receipt Date: 20160809
  Transmission Date: 20161109
  Serious: Yes (Hospitalization)
  Sender: FDA-Public Use
  Company Number: FR-ROCHE-1809996

PATIENT
  Age: 81 Year
  Sex: Female

DRUGS (6)
  1. TRASTUZUMAB [Suspect]
     Active Substance: TRASTUZUMAB
     Dosage: THEN EVERY 3 WEEKS UNTIL PROGRESSION 6 MG/KG I.V. INFUSION OVER 30 TO 90 MIN.?DATE OF LAST DOSE: 13/
     Route: 042
  2. PERTUZUMAB [Suspect]
     Active Substance: PERTUZUMAB
     Dosage: THEN EVERY 3 WEEKS UNTIL PROGRESSION 420 MG I.V. INFUSION OVER 30 TO 60 MIN?DATE OF LAST DOSE: 13/JU
     Route: 042
  3. FUROSEMIDE. [Concomitant]
     Active Substance: FUROSEMIDE
     Route: 048
     Dates: start: 2005, end: 20160804
  4. TRASTUZUMAB [Suspect]
     Active Substance: TRASTUZUMAB
     Indication: HER-2 POSITIVE BREAST CANCER
     Dosage: FIRST ADMINISTRATION (LOADING DOSE) 8 MG/KG I.V. INFUSION OVER 90 MIN.
     Route: 042
     Dates: start: 20150730
  5. GLICLAZIDE [Concomitant]
     Active Substance: GLICLAZIDE
     Route: 048
     Dates: start: 1991, end: 20160804
  6. PERTUZUMAB [Suspect]
     Active Substance: PERTUZUMAB
     Indication: HER-2 POSITIVE BREAST CANCER
     Dosage: FIRST ADMINISTRATION (LOADING DOSE) 840 MG I.V. INFUSION OVER 60 MIN.
     Route: 042
     Dates: start: 20150730

REACTIONS (1)
  - Acute kidney injury [Recovered/Resolved]

NARRATIVE: CASE EVENT DATE: 20160804
